FAERS Safety Report 11138710 (Version 1)
Quarter: 2015Q2

REPORT INFORMATION
  Report Type: Report from Study
  Country: BR (occurrence: BR)
  Receive Date: 20150527
  Receipt Date: 20150527
  Transmission Date: 20150821
  Serious: Yes (Hospitalization, Other)
  Sender: FDA-Public Use
  Company Number: BR-ROCHE-1393212

PATIENT
  Age: 48 Year
  Sex: Female
  Weight: 50 kg

DRUGS (9)
  1. PREDSIM [Concomitant]
     Active Substance: PREDNISOLONE
     Indication: RHEUMATOID ARTHRITIS
     Route: 065
  2. METHOTREXATE [Concomitant]
     Active Substance: METHOTREXATE
     Indication: RHEUMATOID ARTHRITIS
     Dosage: ADMINISTERED ON THURSDAYS AND FRIDAYS
     Route: 065
  3. TECTA [Concomitant]
     Active Substance: PANTOPRAZOLE MAGNESIUM
     Indication: GASTRIC DISORDER
     Route: 065
  4. PROCORALAN [Concomitant]
     Active Substance: IVABRADINE
     Indication: CARDIAC DISORDER
  5. RESOLOR [Concomitant]
     Active Substance: PRUCALOPRIDE SUCCINATE
  6. ACTEMRA [Suspect]
     Active Substance: TOCILIZUMAB
     Indication: RHEUMATOID ARTHRITIS
     Dosage: MOST RECENT DOSE WAS ON 13/JAN/2014.
     Route: 042
     Dates: start: 20131113, end: 201503
  7. PRIMOGYNA [Concomitant]
     Route: 065
  8. MABTHERA [Suspect]
     Active Substance: RITUXIMAB
     Indication: RHEUMATOID ARTHRITIS
     Route: 042
     Dates: start: 20150511
  9. SOMALIUM [Concomitant]

REACTIONS (20)
  - Anaemia [Not Recovered/Not Resolved]
  - Laboratory test abnormal [Unknown]
  - Joint swelling [Not Recovered/Not Resolved]
  - Pruritus [Unknown]
  - Drug ineffective [Unknown]
  - Weight decreased [Not Recovered/Not Resolved]
  - Pharyngeal erythema [Recovering/Resolving]
  - Malnutrition [Not Recovered/Not Resolved]
  - Arthralgia [Not Recovered/Not Resolved]
  - Hepatomegaly [Unknown]
  - Pyrexia [Recovering/Resolving]
  - Endocrine disorder [Unknown]
  - Cough [Unknown]
  - Headache [Unknown]
  - Eye pain [Unknown]
  - Throat tightness [Unknown]
  - Trismus [Not Recovered/Not Resolved]
  - Malnutrition [Not Recovered/Not Resolved]
  - Haemorrhoids thrombosed [Unknown]
  - Oesophageal disorder [Unknown]

NARRATIVE: CASE EVENT DATE: 201402
